FAERS Safety Report 24625074 (Version 1)
Quarter: 2024Q4

REPORT INFORMATION
  Report Type: Spontaneous
  Country: US (occurrence: US)
  Receive Date: 20241115
  Receipt Date: 20241115
  Transmission Date: 20250114
  Serious: Yes (Hospitalization, Other)
  Sender: AMGEN
  Company Number: US-AMGEN-USASP2024220597

PATIENT
  Age: 69 Year
  Sex: Male

DRUGS (5)
  1. FILGRASTIM [Suspect]
     Active Substance: FILGRASTIM
     Indication: Neutropenia
     Dosage: UNK
     Route: 065
     Dates: start: 2023
  2. FILGRASTIM [Suspect]
     Active Substance: FILGRASTIM
     Indication: Leukopenia
  3. FILGRASTIM [Suspect]
     Active Substance: FILGRASTIM
     Indication: Thrombocytopenia
  4. LENALIDOMIDE [Concomitant]
     Active Substance: LENALIDOMIDE
     Indication: Thymoma
     Dosage: 5 MILLIGRAM, QD
     Route: 048
     Dates: start: 202306
  5. NIVOLUMAB [Concomitant]
     Active Substance: NIVOLUMAB
     Indication: Thymoma
     Dosage: UNK
     Route: 065

REACTIONS (7)
  - Acute respiratory failure [Unknown]
  - Metastases to lung [Unknown]
  - Lung consolidation [Unknown]
  - Pneumonia [Unknown]
  - Sepsis [Unknown]
  - Anaemia [Unknown]
  - Leukocytosis [Unknown]

NARRATIVE: CASE EVENT DATE: 20230101
